FAERS Safety Report 5691237-2 (Version None)
Quarter: 2008Q1

REPORT INFORMATION
  Report Type: 
  Country: None (occurrence: None)
  Receive Date: 20080331
  Receipt Date: 20080318
  Transmission Date: 20080703
  Serious: Yes (Other)
  Sender: FDA-Public Use
  Company Number: 2008BI007606

PATIENT
  Sex: Female

DRUGS (1)
  1. AVONEX [Suspect]
     Dosage: ;IM
     Route: 030

REACTIONS (2)
  - ILL-DEFINED DISORDER [None]
  - MYOCARDIAL INFARCTION [None]
